FAERS Safety Report 4620023-7 (Version None)
Quarter: 2005Q1

REPORT INFORMATION
  Report Type: 
  Country: None (occurrence: None)
  Receive Date: 20050324
  Receipt Date: 20050310
  Transmission Date: 20050727
  Serious: Yes (Other)
  Sender: FDA-Public Use
  Company Number: DSA_25252_2004

PATIENT
  Age: 78 Year
  Sex: Male

DRUGS (10)
  1. TEVETEN [Suspect]
     Indication: HYPERTENSION
     Dosage: 400 MG Q DAY
     Dates: start: 20040915, end: 20040924
  2. DIDROCAL [Concomitant]
  3. COVERSYL [Concomitant]
  4. LOZIDE [Concomitant]
  5. SERC [Concomitant]
  6. ATIVAN [Concomitant]
  7. PLAVIX [Concomitant]
  8. REMERON [Concomitant]
  9. ZANTAC [Concomitant]
  10. PRAVACHOL [Concomitant]

REACTIONS (4)
  - BLOOD TRIGLYCERIDES INCREASED [None]
  - DIZZINESS [None]
  - MUSCLE SPASMS [None]
  - VISION BLURRED [None]
